FAERS Safety Report 5936461-6 (Version None)
Quarter: 2008Q4

REPORT INFORMATION
  Report Type: 
  Country: None (occurrence: None)
  Receive Date: 20081020
  Receipt Date: 20080804
  Transmission Date: 20090506
  Serious: Yes (Other)
  Sender: FDA-Public Use
  Company Number: US-WYE-H05417908

PATIENT
  Age: 83 Year
  Sex: Female
  Weight: 54.48 kg

DRUGS (3)
  1. ADVIL PM [Suspect]
     Indication: INSOMNIA
     Dosage: 1 CAPLET X 1, ORAL
     Route: 048
     Dates: start: 20080701, end: 20080701
  2. ENALAPRIL MALEATE [Concomitant]
  3. SYNTHROID [Concomitant]

REACTIONS (4)
  - DRUG EFFECT PROLONGED [None]
  - EYE DISORDER [None]
  - EYE SWELLING [None]
  - HANGOVER [None]
